FAERS Safety Report 9248191 (Version 1)
Quarter: 2013Q1

REPORT INFORMATION
  Report Type: Spontaneous
  Country: US (occurrence: None)
  Receive Date: 20130305
  Receipt Date: 20130305
  Transmission Date: 20140127
  Serious: Yes (Hospitalization)
  Sender: FDA-Public Use
  Company Number: 163-21880-12101005

PATIENT
  Age: 86 Year
  Sex: Male

DRUGS (9)
  1. REVLIMID [Suspect]
     Indication: NON-HODGKIN^S LYMPHOMA
     Route: 048
     Dates: start: 201209
  2. DECADRON (DEXAMETHASONE) [Concomitant]
  3. BUMEX (BUMETANIDE) [Concomitant]
  4. ASPIRIN (ACETYLSALICYLIC ACID) [Concomitant]
  5. JANUVIA (SITAGLIPTIN PHOSPHATE) [Concomitant]
  6. GLIMEPIRIDIE (GLIMEPRIDE) [Concomitant]
  7. ALLOPURINOL [Concomitant]
  8. COREG (CARVEDILOL) [Concomitant]
  9. DIGOXIN (DIGOXIN) [Concomitant]

REACTIONS (3)
  - Asthenia [None]
  - Lymphoma [None]
  - Disease progression [None]
